FAERS Safety Report 5879969-4 (Version None)
Quarter: 2008Q3

REPORT INFORMATION
  Report Type: 
  Country: None (occurrence: None)
  Receive Date: 20080912
  Receipt Date: 20080903
  Transmission Date: 20090109
  Serious: Yes (Hospitalization)
  Sender: FDA-Public Use
  Company Number: US-ELI_LILLY_AND_COMPANY-US200809000870

PATIENT
  Sex: Male

DRUGS (2)
  1. HUMALOG [Suspect]
     Dates: start: 20070901
  2. HUMULIN N [Suspect]
     Dates: start: 20070901

REACTIONS (2)
  - CELLULITIS [None]
  - UMBILICAL HERNIA [None]
